FAERS Safety Report 8386275-5 (Version None)
Quarter: 2012Q2

REPORT INFORMATION
  Report Type: 
  Country: None (occurrence: None)
  Receive Date: 20120525
  Receipt Date: 20120521
  Transmission Date: 20120825
  Serious: Yes (Other)
  Sender: FDA-Public Use
  Company Number: US-PFIZER INC-2012122930

PATIENT
  Sex: Male
  Weight: 65.3 kg

DRUGS (16)
  1. LYRICA [Interacting]
     Indication: MIGRAINE
     Dosage: 200 MG, 3X/DAY
     Dates: start: 20100101
  2. ARTHROTEC [Interacting]
     Indication: BURSA INJURY
  3. METHOCARBAMOL [Suspect]
     Indication: GASTROINTESTINAL PAIN
  4. CELEBREX [Suspect]
     Indication: LUMBAR RADICULOPATHY
     Dosage: 200 MG, 2X/DAY
     Dates: end: 20120101
  5. METHOCARBAMOL [Suspect]
     Indication: LUMBAR RADICULOPATHY
     Dosage: 750 MG, 3X/DAY
  6. LAMOTRIGINE [Concomitant]
     Indication: CONVULSION
     Dosage: 150 MG, 2X/DAY
  7. LYRICA [Interacting]
     Indication: BACK INJURY
  8. CELEBREX [Suspect]
     Indication: BURSA INJURY
  9. LYRICA [Interacting]
     Indication: LUMBAR RADICULOPATHY
  10. CELEBREX [Suspect]
     Indication: JOINT INJURY
  11. ARTHROTEC [Interacting]
     Indication: INTERVERTEBRAL DISC PROTRUSION
     Dosage: 50 MG, 3X/DAY
     Dates: end: 20120101
  12. LODINE XL [Suspect]
     Indication: GASTROINTESTINAL PAIN
  13. CELEBREX [Suspect]
     Indication: INTERVERTEBRAL DISC PROTRUSION
  14. LODINE XL [Suspect]
     Indication: NERVOUS SYSTEM DISORDER
     Dosage: 1200 MG, DAILY
  15. ARTHROTEC [Interacting]
     Indication: LUMBAR RADICULOPATHY
     Dosage: 75 MG, 2X/DAY
     Dates: start: 20120101
  16. ARTHROTEC [Interacting]
     Indication: JOINT INJURY

REACTIONS (6)
  - NERVOUS SYSTEM DISORDER [None]
  - WHEELCHAIR USER [None]
  - DIARRHOEA [None]
  - DRUG INEFFECTIVE [None]
  - DRUG INTERACTION [None]
  - GASTROINTESTINAL PAIN [None]
